FAERS Safety Report 19447539 (Version 1)
Quarter: 2021Q2

REPORT INFORMATION
  Report Type: Spontaneous
  Country: US (occurrence: US)
  Receive Date: 20210622
  Receipt Date: 20210622
  Transmission Date: 20210717
  Serious: No
  Sender: FDA-Public Use
  Company Number: US-GLAXOSMITHKLINE-US2021AMR128772

PATIENT

DRUGS (3)
  1. BENLYSTA [Suspect]
     Active Substance: BELIMUMAB
     Indication: SYSTEMIC LUPUS ERYTHEMATOSUS
     Dosage: UNK
  2. PEPPERMINT TEA [Suspect]
     Active Substance: MENTHA PIPERITA
     Indication: PRODUCT USED FOR UNKNOWN INDICATION
     Dosage: UNK
  3. GINGER TEA [Suspect]
     Active Substance: GINGER
     Indication: PRODUCT USED FOR UNKNOWN INDICATION
     Dosage: UNK

REACTIONS (8)
  - Visual impairment [Unknown]
  - Nausea [Unknown]
  - Condition aggravated [Unknown]
  - Depression [Unknown]
  - Hepatic steatosis [Unknown]
  - Stress at work [Unknown]
  - Abdominal pain [Unknown]
  - Decreased appetite [Unknown]

NARRATIVE: CASE EVENT DATE: 2020
